FAERS Safety Report 7199776-2 (Version None)
Quarter: 2010Q4

REPORT INFORMATION
  Report Type: 
  Country: None (occurrence: None)
  Receive Date: 20101228
  Receipt Date: 20100719
  Transmission Date: 20110411
  Serious: No
  Sender: FDA-Public Use
  Company Number: US-KINGPHARMUSA00001-K201000920

PATIENT
  Sex: Female

DRUGS (4)
  1. CORGARD [Suspect]
     Dosage: 80 MG QAM AND QPM, UNK
     Route: 048
  2. LOTENSIN [Suspect]
     Dosage: 40 MG, UNK
  3. LOTENSIN [Suspect]
     Dosage: 20 MG, UNK
  4. UNITHROID [Concomitant]
     Indication: HYPOTHYROIDISM
     Dosage: 1 DF^LOW DOSE,^ QAM

REACTIONS (1)
  - BLOOD PRESSURE DIASTOLIC DECREASED [None]
